FAERS Safety Report 10243010 (Version 1)
Quarter: 2014Q2

REPORT INFORMATION
  Report Type: Spontaneous
  Country: IN (occurrence: IN)
  Receive Date: 20140618
  Receipt Date: 20140618
  Transmission Date: 20141212
  Serious: Yes (Hospitalization)
  Sender: FDA-Public Use
  Company Number: IN-ACCORD-024125

PATIENT
  Age: 50 Year
  Sex: Female

DRUGS (4)
  1. MYCOPHENOLIC ACID [Suspect]
     Indication: IMMUNOSUPPRESSION
  2. PREDNISOLONE [Suspect]
     Indication: IMMUNOSUPPRESSION
  3. BASILIXIMAB [Suspect]
     Indication: IMMUNOSUPPRESSION
  4. TACROLIMUS [Suspect]
     Indication: IMMUNOSUPPRESSION

REACTIONS (12)
  - Pyrexia [Recovered/Resolved]
  - Headache [Unknown]
  - Mouth ulceration [Unknown]
  - Dysphagia [Unknown]
  - Dysarthria [Recovering/Resolving]
  - Somnolence [Unknown]
  - Muscular weakness [Recovering/Resolving]
  - Hemiparesis [Unknown]
  - VIIth nerve paralysis [Unknown]
  - Scedosporium infection [Recovered/Resolved]
  - Tuberculosis [Recovered/Resolved]
  - Cytomegalovirus infection [Recovered/Resolved]
